FAERS Safety Report 15632937 (Version 1)
Quarter: 2018Q4

REPORT INFORMATION
  Report Type: Report from Study
  Country: CA (occurrence: CA)
  Receive Date: 20181119
  Receipt Date: 20181119
  Transmission Date: 20190205
  Serious: Yes (Hospitalization, Other)
  Sender: FDA-Public Use
  Company Number: CA-BRISTOL-MYERS SQUIBB COMPANY-BMS-2017-087073

PATIENT
  Age: 78 Year
  Sex: Female

DRUGS (1)
  1. ABATACEPT [Suspect]
     Active Substance: ABATACEPT
     Indication: RHEUMATOID ARTHRITIS
     Dosage: 500 MG, Q4WK
     Route: 042
     Dates: start: 20150119

REACTIONS (10)
  - Chest pain [Unknown]
  - Blood pressure systolic decreased [Unknown]
  - Diarrhoea [Unknown]
  - Pain [Recovering/Resolving]
  - Dizziness [Unknown]
  - Supraventricular tachycardia [Recovered/Resolved]
  - Heart rate increased [Unknown]
  - Gait disturbance [Unknown]
  - Back pain [Unknown]
  - Dyspnoea [Unknown]

NARRATIVE: CASE EVENT DATE: 20170910
